FAERS Safety Report 12080054 (Version 4)
Quarter: 2016Q3

REPORT INFORMATION
  Report Type: Report from Study
  Country: CO (occurrence: CO)
  Receive Date: 20160216
  Receipt Date: 20160729
  Transmission Date: 20161109
  Serious: Yes (Other)
  Sender: FDA-Public Use
  Company Number: PHHY2016CO019996

PATIENT
  Age: 54 Year
  Sex: Male
  Weight: 63 kg

DRUGS (2)
  1. TASIGNA [Suspect]
     Active Substance: NILOTINIB
     Indication: CHRONIC MYELOID LEUKAEMIA
     Dosage: 2 DF, Q12H
     Route: 048
     Dates: start: 20140613
  2. OMEPRAZOLE. [Concomitant]
     Active Substance: OMEPRAZOLE
     Indication: PRODUCT USED FOR UNKNOWN INDICATION
     Dosage: 20 MG, QD
     Route: 048

REACTIONS (7)
  - Viral infection [Unknown]
  - Gene mutation identification test positive [Unknown]
  - Malignant neoplasm progression [Unknown]
  - Immunosuppression [Unknown]
  - Facial paralysis [Unknown]
  - Chronic myeloid leukaemia [Unknown]
  - Malaise [Unknown]

NARRATIVE: CASE EVENT DATE: 20160208
